FAERS Safety Report 8783395 (Version 2)
Quarter: 2012Q4

REPORT INFORMATION
  Report Type: Report from Study
  Country: US (occurrence: US)
  Receive Date: 20120913
  Receipt Date: 20120920
  Transmission Date: 20130627
  Serious: Yes (Hospitalization)
  Sender: FDA-Public Use
  Company Number: US-JNJFOC-20120904460

PATIENT
  Sex: Female
  Weight: 25 kg

DRUGS (8)
  1. REMICADE [Suspect]
     Indication: INFLAMMATORY BOWEL DISEASE
     Route: 042
     Dates: start: 20120524, end: 20120524
  2. REMICADE [Suspect]
     Indication: INFLAMMATORY BOWEL DISEASE
     Route: 042
     Dates: start: 20110415
  3. HUMIRA [Suspect]
     Indication: INFLAMMATORY BOWEL DISEASE
     Dates: start: 20120623
  4. PREDNISONE [Concomitant]
  5. AZATHIOPRINE [Concomitant]
  6. MULTIVITAMINS [Concomitant]
  7. IRON SUPPLEMENTS [Concomitant]
  8. PREVACID [Concomitant]

REACTIONS (1)
  - Crohn^s disease [Recovered/Resolved]
